FAERS Safety Report 15877398 (Version 2)
Quarter: 2019Q2

REPORT INFORMATION
  Report Type: Spontaneous
  Country: US (occurrence: US)
  Receive Date: 20190128
  Receipt Date: 20190422
  Transmission Date: 20190711
  Serious: No
  Sender: FDA-Public Use
  Company Number: US-SA-2019SA021448

PATIENT
  Age: 61 Year
  Sex: Female

DRUGS (2)
  1. KEVZARA [Suspect]
     Active Substance: SARILUMAB
     Indication: RHEUMATOID ARTHRITIS
     Dosage: 200 UNK
     Route: 058
     Dates: start: 201811
  2. KEVZARA [Suspect]
     Active Substance: SARILUMAB
     Dosage: 200 MG
     Route: 058
     Dates: start: 20181228, end: 20190415

REACTIONS (4)
  - Pyrexia [Unknown]
  - Drug ineffective [Unknown]
  - Facial pain [Unknown]
  - Chest pain [Unknown]

NARRATIVE: CASE EVENT DATE: 20190122
